FAERS Safety Report 23984017 (Version 1)
Quarter: 2024Q2

REPORT INFORMATION
  Report Type: Report from Study
  Country: BR (occurrence: BR)
  Receive Date: 20240618
  Receipt Date: 20240618
  Transmission Date: 20240716
  Serious: Yes (Other)
  Sender: FDA-Public Use
  Company Number: BR-CELLTRION INC.-2022BR014588

PATIENT

DRUGS (5)
  1. INFLIXIMAB [Suspect]
     Active Substance: INFLIXIMAB
     Indication: Rheumatoid arthritis
     Dosage: 3 AMPOULES (160MG) EVERY 2 MONTHS
     Route: 042
     Dates: start: 20220906
  2. INFLIXIMAB [Suspect]
     Active Substance: INFLIXIMAB
     Dosage: 3 AMPOULES (160MG) EVERY 2 MONTHS
     Route: 042
     Dates: start: 20230505
  3. ENALAPRIL [Concomitant]
     Active Substance: ENALAPRIL
     Indication: Product used for unknown indication
     Dosage: 1 PILL PER DAY (START: 3 YEARS AGO)
     Route: 048
  4. HYDROCHLOROTHIAZIDE [Concomitant]
     Active Substance: HYDROCHLOROTHIAZIDE
     Indication: Product used for unknown indication
     Dosage: 1 PILL PER DAY (START: 3 YEARS AGO)
     Route: 048
  5. LOSARTAN [Concomitant]
     Active Substance: LOSARTAN
     Indication: Product used for unknown indication
     Dosage: 1 PILL PER DAY
     Route: 048

REACTIONS (8)
  - Rheumatoid arthritis [Unknown]
  - Movement disorder [Unknown]
  - Peripheral swelling [Unknown]
  - Joint swelling [Unknown]
  - Cough [Recovering/Resolving]
  - Influenza [Recovering/Resolving]
  - Therapy interrupted [Unknown]
  - Intentional dose omission [Unknown]
